FAERS Safety Report 7893451-4 (Version None)
Quarter: 2011Q4

REPORT INFORMATION
  Report Type: 
  Country: None (occurrence: None)
  Receive Date: 20111104
  Receipt Date: 20111021
  Transmission Date: 20120403
  Serious: Yes (Hospitalization)
  Sender: FDA-Public Use
  Company Number: GB-ROCHE-523628

PATIENT
  Age: 24 Year
  Sex: Female

DRUGS (1)
  1. ISOTRETINOIN [Suspect]
     Indication: ACNE CYSTIC
     Dosage: (0.5MG/KG/DAY); FOR 56 DAYS.
     Route: 048

REACTIONS (10)
  - ANAL ULCER [None]
  - BLOOD BILIRUBIN INCREASED [None]
  - TOXICITY TO VARIOUS AGENTS [None]
  - ANAEMIA [None]
  - COLITIS [None]
  - NEUTROPENIA [None]
  - ANAEMIA FOLATE DEFICIENCY [None]
  - LIP EROSION [None]
  - ORAL MUCOSAL ERYTHEMA [None]
  - ANAEMIA VITAMIN B12 DEFICIENCY [None]
